FAERS Safety Report 9192613 (Version 1)
Quarter: 2013Q1

REPORT INFORMATION
  Report Type: Spontaneous
  Country: US (occurrence: None)
  Receive Date: 20130325
  Receipt Date: 20130325
  Transmission Date: 20140127
  Serious: Yes (Hospitalization)
  Sender: FDA-Public Use
  Company Number: IPC201303-000083

PATIENT
  Age: 51 Year
  Sex: Female
  Weight: 55 kg

DRUGS (13)
  1. ALLOPURINOL [Suspect]
     Dosage: 100 MG ONCE DAILY
  2. FUROSEMIDE [Suspect]
  3. PROPRANOLOL HYDROCHLORIDE [Suspect]
  4. ENTECAVIR [Suspect]
  5. SPIRONOLACTONE [Suspect]
  6. LACTULOSE [Suspect]
  7. ETOPOSIDE [Suspect]
  8. METHYLPREDNISOLONE [Suspect]
  9. CYTARABINE [Suspect]
  10. CISPLATIN [Suspect]
  11. VANCOMYCIN [Suspect]
  12. PIPERACILLIN-TAZOBACTAM [Suspect]
  13. FILGRASTIM [Suspect]

REACTIONS (3)
  - Hypophosphataemia [None]
  - Neutropenia [None]
  - Leukopenia [None]
